FAERS Safety Report 6185794-X (Version None)
Quarter: 2009Q2

REPORT INFORMATION
  Report Type: 
  Country: None (occurrence: None)
  Receive Date: 20090511
  Receipt Date: 20090501
  Transmission Date: 20091009
  Serious: Yes (Death, Hospitalization)
  Sender: FDA-Public Use
  Company Number: A0722944A

PATIENT
  Age: 53 Year
  Sex: Male
  Weight: 172.3 kg

DRUGS (2)
  1. AVANDIA [Suspect]
     Dosage: 8MG PER DAY
     Dates: start: 20030804, end: 20060616
  2. AVANDAMET [Suspect]
     Route: 048
     Dates: start: 20070304, end: 20070306

REACTIONS (12)
  - ANAEMIA [None]
  - BLINDNESS [None]
  - CARDIAC FAILURE CONGESTIVE [None]
  - CELLULITIS [None]
  - CORONARY ARTERY DISEASE [None]
  - DEATH [None]
  - DIABETES MELLITUS [None]
  - HYPERTENSION [None]
  - MYOCARDIAL INFARCTION [None]
  - PERIPHERAL VASCULAR DISORDER [None]
  - RETINAL DETACHMENT [None]
  - TRANSIENT ISCHAEMIC ATTACK [None]
